FAERS Safety Report 14137546 (Version 1)
Quarter: 2017Q4

REPORT INFORMATION
  Report Type: Spontaneous
  Country: US (occurrence: US)
  Receive Date: 20171027
  Receipt Date: 20171027
  Transmission Date: 20180321
  Serious: No
  Sender: FDA-Public Use
  Company Number: US-SA-2017SA023512

PATIENT
  Age: 40 Year
  Sex: Female

DRUGS (1)
  1. UNISOM SLEEPTABS [Suspect]
     Active Substance: DOXYLAMINE SUCCINATE
     Route: 065
     Dates: start: 20170208

REACTIONS (2)
  - Exposure during pregnancy [Unknown]
  - Wrong technique in product usage process [Unknown]
